FAERS Safety Report 4438845-4 (Version None)
Quarter: 2004Q3

REPORT INFORMATION
  Report Type: 
  Country: None (occurrence: None)
  Receive Date: 20040830
  Receipt Date: 20040818
  Transmission Date: 20050211
  Serious: Yes (Hospitalization)
  Sender: FDA-Public Use
  Company Number: HQWYE308621JUL04

PATIENT
  Age: 31 Year
  Sex: Male
  Weight: 102.15 kg

DRUGS (2)
  1. ADVIL [Suspect]
     Indication: MIGRAINE
     Dosage: 1 TABLET 1 TO 2 TIMES A WEEK, ORAL (THERAPY DATES: 3 OR 4 MONTHS BEFORE REPORTED EVENT)
     Route: 048
  2. ALEVE [Suspect]
     Indication: MIGRAINE
     Dosage: 220 MG AS NEEDED, ORAL
     Route: 048

REACTIONS (15)
  - ABDOMINAL PAIN [None]
  - ANAEMIA [None]
  - ANXIETY [None]
  - BLOOD PRESSURE DECREASED [None]
  - BLOOD PRESSURE INCREASED [None]
  - DIARRHOEA INFECTIOUS [None]
  - DIZZINESS [None]
  - DRUG INEFFECTIVE [None]
  - DUODENAL ULCER [None]
  - DYSPNOEA [None]
  - HEADACHE [None]
  - RECTAL HAEMORRHAGE [None]
  - RESPIRATORY RATE INCREASED [None]
  - TACHYCARDIA [None]
  - TRANSFUSION REACTION [None]
